FAERS Safety Report 5165760-3 (Version None)
Quarter: 2006Q4

REPORT INFORMATION
  Report Type: 
  Country: None (occurrence: None)
  Receive Date: 20061128
  Receipt Date: 20061113
  Transmission Date: 20070319
  Serious: Yes (Death, Hospitalization)
  Sender: FDA-Public Use
  Company Number: GXKR2006TW07353

PATIENT
  Age: 34 Year
  Sex: Female

DRUGS (6)
  1. AMPICILLIN SODIUM+SULBACTAM SODIUM S [Suspect]
     Indication: INFECTION
  2. METRONIDAZOLE [Suspect]
     Indication: INFECTION
  3. PIPERACILLIN W/TAZOBACTAM (PIPERACILLIN, TAZOBACTAM) [Suspect]
     Indication: INFECTION
  4. CEFPIROME (CEFPIROME) [Concomitant]
  5. IMIPENEM (IMIPENEM) [Suspect]
     Indication: INFECTION
  6. CHEMOTHERAPEUTICS, OTHER (CHEMOTHERAPEUTICS, OTHER) [Concomitant]

REACTIONS (2)
  - CLOSTRIDIUM DIFFICILE COLITIS [None]
  - OCCULT BLOOD POSITIVE [None]
